FAERS Safety Report 5145005-0 (Version None)
Quarter: 2006Q4

REPORT INFORMATION
  Report Type: 
  Country: None (occurrence: None)
  Receive Date: 20061031
  Receipt Date: 20061023
  Transmission Date: 20070319
  Serious: Yes (Hospitalization)
  Sender: FDA-Public Use
  Company Number: 2006SP004844

PATIENT
  Age: 60 Year
  Sex: Male

DRUGS (2)
  1. PEG-INTRON [Suspect]
     Indication: HEPATITIS C
     Dosage: UNKNOWN; SC
     Route: 058
     Dates: start: 20060925, end: 20061015
  2. RIBAVIRIN [Suspect]
     Indication: HEPATITIS C
     Dosage: UNKNOWN; PO
     Route: 048
     Dates: start: 20060925, end: 20061015

REACTIONS (5)
  - ABDOMINAL DISTENSION [None]
  - AMMONIA INCREASED [None]
  - ARTERIAL DISORDER [None]
  - HAEMATEMESIS [None]
  - HAEMORRHAGE [None]
